FAERS Safety Report 6154196-4 (Version None)
Quarter: 2009Q2

REPORT INFORMATION
  Report Type: 
  Country: None (occurrence: None)
  Receive Date: 20090414
  Receipt Date: 20090407
  Transmission Date: 20091009
  Serious: Yes (Other)
  Sender: FDA-Public Use
  Company Number: JP-JNJFOC-20090307309

PATIENT
  Age: 78 Year
  Sex: Male
  Weight: 42 kg

DRUGS (6)
  1. DUROTEP MT [Suspect]
     Route: 062
  2. DUROTEP MT [Suspect]
     Route: 062
  3. DUROTEP MT [Suspect]
     Dosage: 2 PATCHES OF 25 UG/HR
     Route: 062
  4. DUROTEP MT [Suspect]
     Indication: CANCER PAIN
     Route: 062
  5. PONSTEL [Concomitant]
     Route: 048
  6. RACOL [Concomitant]
     Route: 048

REACTIONS (3)
  - RENAL IMPAIRMENT [None]
  - RESPIRATORY DEPRESSION [None]
  - SOMNOLENCE [None]
